FAERS Safety Report 13518944 (Version 4)
Quarter: 2017Q4

REPORT INFORMATION
  Report Type: Spontaneous
  Country: US (occurrence: US)
  Receive Date: 20170505
  Receipt Date: 20171228
  Transmission Date: 20180320
  Serious: Yes (Other)
  Sender: FDA-Public Use
  Company Number: US-PFIZER INC-2017192419

PATIENT
  Age: 39 Year
  Sex: Male

DRUGS (3)
  1. METHYLPREDNISOLONE ACETATE. [Suspect]
     Active Substance: METHYLPREDNISOLONE ACETATE
     Indication: ARTHRALGIA
     Dosage: UNK
  2. EPINEPHRINE. [Suspect]
     Active Substance: EPINEPHRINE
     Indication: ARTHRALGIA
     Dosage: UNK
  3. BUPIVACAINE HCL [Suspect]
     Active Substance: BUPIVACAINE HYDROCHLORIDE
     Indication: ARTHRALGIA
     Dosage: UNK

REACTIONS (2)
  - Hypokalaemia [Recovered/Resolved]
  - Familial periodic paralysis [Recovered/Resolved]
